FAERS Safety Report 10229843 (Version 1)
Quarter: 2014Q2

REPORT INFORMATION
  Report Type: Spontaneous
  Country: US (occurrence: None)
  Receive Date: 20140610
  Receipt Date: 20140610
  Transmission Date: 20141212
  Serious: Yes (Other)
  Sender: FDA-Public Use
  Company Number: None

PATIENT
  Age: 73 Year
  Sex: Female

DRUGS (2)
  1. ZETIA 10 MG TAB MERCK/SCHE [Suspect]
     Indication: BLOOD CHOLESTEROL INCREASED
     Dosage: 10 MG, 1, 1X, MOUTH
     Route: 048
     Dates: start: 20140224, end: 20140226
  2. AMLODIPINE [Concomitant]

REACTIONS (3)
  - Asthenia [None]
  - Confusional state [None]
  - Dysstasia [None]
